FAERS Safety Report 7442116-1 (Version None)
Quarter: 2011Q2

REPORT INFORMATION
  Report Type: 
  Country: None (occurrence: None)
  Receive Date: 20110428
  Receipt Date: 20110413
  Transmission Date: 20111010
  Serious: Yes (Hospitalization)
  Sender: FDA-Public Use
  Company Number: PHHY2011US28836

PATIENT
  Sex: Female

DRUGS (10)
  1. DIOVAN [Suspect]
     Dosage: 160 MG, PER DAY
  2. DIOVAN [Suspect]
     Dosage: 80 MG, PER DAY
  3. LIPITOR [Concomitant]
  4. METOPROLOL [Concomitant]
     Dosage: 0.5 DF, PER DAY
  5. ZYRTEC [Concomitant]
  6. SERTALINE [Concomitant]
  7. CENTRUM [Concomitant]
  8. ASPIRIN [Concomitant]
     Dosage: 81 MG, UNK
  9. VITAMINS [Concomitant]
  10. LANSOTRAZOLE [Concomitant]

REACTIONS (2)
  - PNEUMONIA [None]
  - COLLAPSE OF LUNG [None]
